FAERS Safety Report 5578164-6 (Version None)
Quarter: 2007Q4

REPORT INFORMATION
  Report Type: 
  Country: None (occurrence: None)
  Receive Date: 20071231
  Receipt Date: 20071220
  Transmission Date: 20080405
  Serious: Yes (Hospitalization, Other)
  Sender: FDA-Public Use
  Company Number: US-PFIZER INC-2007090845

PATIENT
  Age: 84 Year
  Sex: Female
  Weight: 51.3 kg

DRUGS (1)
  1. LYRICA [Suspect]
     Indication: NEURALGIA
     Route: 048
     Dates: start: 20070802, end: 20070804

REACTIONS (4)
  - DIZZINESS [None]
  - FALL [None]
  - HIP FRACTURE [None]
  - RASH [None]
